FAERS Safety Report 22646960 (Version 7)
Quarter: 2023Q4

REPORT INFORMATION
  Report Type: Spontaneous
  Country: US (occurrence: US)
  Receive Date: 20230627
  Receipt Date: 20231215
  Transmission Date: 20240110
  Serious: Yes (Other)
  Sender: FDA-Public Use
  Company Number: US-APELLIS PHARMACEUTICALS-APL-2023-002523

PATIENT
  Age: 70 Year
  Sex: Female

DRUGS (4)
  1. SYFOVRE [Suspect]
     Active Substance: PEGCETACOPLAN
     Indication: Dry age-related macular degeneration
     Dosage: 0.1 MILLILITER, SINGLE
     Route: 031
     Dates: start: 20230530, end: 20230530
  2. SYFOVRE [Suspect]
     Active Substance: PEGCETACOPLAN
     Dosage: UNK, OD
     Dates: start: 20230530
  3. EYLEA [Concomitant]
     Active Substance: AFLIBERCEPT
     Indication: Age-related macular degeneration
     Dosage: UNK UNK, SINGLE
     Dates: start: 20230502, end: 20230502
  4. EYLEA [Concomitant]
     Active Substance: AFLIBERCEPT
     Dosage: UNK,OD, EVERY 16 WEEKS
     Dates: start: 202004

REACTIONS (13)
  - Retinal vasculitis [Recovered/Resolved with Sequelae]
  - Retinal vasculitis [Recovered/Resolved with Sequelae]
  - Visual impairment [Recovered/Resolved with Sequelae]
  - Visual impairment [Recovered/Resolved with Sequelae]
  - Papilloedema [Recovered/Resolved with Sequelae]
  - Papilloedema [Recovered/Resolved with Sequelae]
  - Papilloedema [Unknown]
  - Optic nerve infarction [Unknown]
  - Uveitis [Unknown]
  - Corneal oedema [Recovered/Resolved with Sequelae]
  - Corneal oedema [Recovered/Resolved with Sequelae]
  - Ocular hyperaemia [Not Recovered/Not Resolved]
  - Ocular hyperaemia [Not Recovered/Not Resolved]

NARRATIVE: CASE EVENT DATE: 20230612
